FAERS Safety Report 9771121 (Version 2)
Quarter: 2014Q1

REPORT INFORMATION
  Report Type: Spontaneous
  Country: IT (occurrence: IT)
  Receive Date: 20131218
  Receipt Date: 20140224
  Transmission Date: 20141002
  Serious: Yes (Hospitalization)
  Sender: FDA-Public Use
  Company Number: IT-BRISTOL-MYERS SQUIBB COMPANY-19893189

PATIENT
  Age: 56 Year
  Sex: Female

DRUGS (3)
  1. ABILIFY [Suspect]
     Indication: DEPRESSION
     Dosage: 1 DF: 56 TABS;?RECENT DOSE: 01DEC2013
     Route: 048
     Dates: start: 20131201
  2. FLUVOXAMINE [Suspect]
     Indication: DEPRESSION
     Dosage: 1 DF: 30 UNITS;?RECENT DOSE: 01DEC2013
     Route: 048
     Dates: start: 20131201
  3. FLUVOXAMINE [Suspect]
     Indication: SUICIDE ATTEMPT
     Dosage: 1 DF: 30 UNITS;?RECENT DOSE: 01DEC2013
     Route: 048
     Dates: start: 20131201

REACTIONS (4)
  - Drug abuse [Unknown]
  - Suicide attempt [Unknown]
  - Intentional overdose [Unknown]
  - Sopor [Unknown]
